FAERS Safety Report 14242011 (Version 3)
Quarter: 2018Q2

REPORT INFORMATION
  Report Type: Other
  Country: IT (occurrence: IT)
  Receive Date: 20171201
  Receipt Date: 20180422
  Transmission Date: 20180711
  Serious: Yes (Hospitalization, Other)
  Sender: FDA-Public Use
  Company Number: IT-APOTEX-2017AP022342

PATIENT
  Age: 70 Year
  Sex: Female

DRUGS (3)
  1. PERINDOPRIL DOC COMPRESSE RIVESTITE CON FILM [Suspect]
     Active Substance: PERINDOPRIL ERBUMINE
     Indication: PRODUCT USED FOR UNKNOWN INDICATION
     Dosage: 10 DF, IN TOTAL
     Route: 048
     Dates: start: 20161018, end: 20161018
  2. TARGIN [Suspect]
     Active Substance: NALOXONE HYDROCHLORIDE\OXYCODONE HYDROCHLORIDE
     Indication: PRODUCT USED FOR UNKNOWN INDICATION
     Dosage: 200 MG, IN TOTAL
     Route: 048
     Dates: start: 20161018, end: 20161018
  3. MINIAS [Suspect]
     Active Substance: LORMETAZEPAM
     Indication: PRODUCT USED FOR UNKNOWN INDICATION
     Dosage: 30 DF, IN TOTAL
     Route: 048
     Dates: start: 20161018, end: 20161018

REACTIONS (1)
  - Drug abuse [Unknown]

NARRATIVE: CASE EVENT DATE: 20161018
